FAERS Safety Report 9557850 (Version 1)
Quarter: 2013Q3

REPORT INFORMATION
  Report Type: Spontaneous
  Country: NO (occurrence: NO)
  Receive Date: 20130926
  Receipt Date: 20130926
  Transmission Date: 20140515
  Serious: Yes (Hospitalization)
  Sender: FDA-Public Use
  Company Number: NO-ROCHE-1281061

PATIENT
  Age: 59 Year
  Sex: Male

DRUGS (4)
  1. COPEGUS [Suspect]
     Indication: PRODUCT USED FOR UNKNOWN INDICATION
     Dosage: DOSAGE FORM: UNSPECIFIED
     Route: 048
  2. PEGASYS [Suspect]
     Indication: PRODUCT USED FOR UNKNOWN INDICATION
     Dosage: DOSAGE FORM: UNSPECIFIED
     Route: 058
  3. INCIVO [Suspect]
     Indication: FIBROSIS
     Dosage: 8 TABLETS
     Route: 065
     Dates: start: 20130820
  4. INCIVO [Suspect]
     Indication: HEPATITIS C

REACTIONS (6)
  - Overdose [Unknown]
  - Dehydration [Recovered/Resolved]
  - Blood creatinine increased [Not Recovered/Not Resolved]
  - Blood bilirubin increased [Recovered/Resolved]
  - Haemoglobin increased [Recovered/Resolved]
  - Nausea [Recovered/Resolved]
